FAERS Safety Report 7774603-0 (Version None)
Quarter: 2011Q3

REPORT INFORMATION
  Report Type: 
  Country: None (occurrence: None)
  Receive Date: 20110923
  Receipt Date: 20110920
  Transmission Date: 20111222
  Serious: Yes (Other)
  Sender: FDA-Public Use
  Company Number: HR-ROCHE-803928

PATIENT
  Age: 26 Year
  Sex: Female

DRUGS (2)
  1. PEGINTERFERON ALFA-2A [Suspect]
     Indication: HEPATITIS C
     Route: 058
     Dates: start: 20110407, end: 20110414
  2. RIBAVIRIN [Suspect]
     Indication: HEPATITIS C
     Dosage: FORM: FILM COATED TABLET
     Route: 048
     Dates: start: 20100511, end: 20110414

REACTIONS (3)
  - ANAEMIA [None]
  - THROMBOCYTOPENIA [None]
  - LEUKOPENIA [None]
